FAERS Safety Report 11270979 (Version 1)
Quarter: 2015Q3

REPORT INFORMATION
  Report Type: Spontaneous
  Country: US (occurrence: US)
  Receive Date: 20150714
  Receipt Date: 20150714
  Transmission Date: 20151125
  Serious: Yes (Other)
  Sender: FDA-Public Use
  Company Number: US-ELI_LILLY_AND_COMPANY-US201507001602

PATIENT
  Sex: Female

DRUGS (2)
  1. CYMBALTA [Suspect]
     Active Substance: DULOXETINE HYDROCHLORIDE
     Indication: PAIN
     Dosage: 1 DF, UNKNOWN
     Route: 065
  2. CYMBALTA [Suspect]
     Active Substance: DULOXETINE HYDROCHLORIDE
     Indication: DEPRESSION

REACTIONS (23)
  - Decreased appetite [Unknown]
  - Suicidal ideation [Unknown]
  - Irritability [Unknown]
  - Cold sweat [Unknown]
  - Memory impairment [Unknown]
  - Disturbance in attention [Unknown]
  - Agitation [Unknown]
  - Migraine [Unknown]
  - Hyperhidrosis [Unknown]
  - Paraesthesia [Unknown]
  - Tremor [Unknown]
  - Confusional state [Unknown]
  - Hallucination [Unknown]
  - Vertigo [Unknown]
  - Nightmare [Unknown]
  - Nausea [Unknown]
  - Fatigue [Unknown]
  - Influenza like illness [Unknown]
  - Sensory disturbance [Unknown]
  - Aggression [Unknown]
  - Dizziness [Unknown]
  - Insomnia [Unknown]
  - Drug withdrawal syndrome [Unknown]
